FAERS Safety Report 20455434 (Version 1)
Quarter: 2022Q1

REPORT INFORMATION
  Report Type: Report from Study
  Country: KR (occurrence: KR)
  Receive Date: 20220210
  Receipt Date: 20220210
  Transmission Date: 20220423
  Serious: Yes (Other)
  Sender: FDA-Public Use
  Company Number: KR-JNJFOC-20220208270

PATIENT

DRUGS (2)
  1. REMICADE [Suspect]
     Active Substance: INFLIXIMAB
     Indication: Rheumatoid arthritis
     Route: 042
  2. SIMPONI [Suspect]
     Active Substance: GOLIMUMAB
     Indication: Rheumatoid arthritis
     Route: 058

REACTIONS (12)
  - Uveitis [Unknown]
  - Liver injury [Unknown]
  - Neoplasm malignant [Unknown]
  - Neutropenia [Unknown]
  - Pancytopenia [Unknown]
  - Infection [Unknown]
  - Psoriasis [Unknown]
  - Abdominal discomfort [Unknown]
  - Rash [Unknown]
  - Infusion related reaction [Unknown]
  - Drug ineffective [Unknown]
  - Injection related reaction [Unknown]
